FAERS Safety Report 9269098 (Version 1)
Quarter: 2013Q2

REPORT INFORMATION
  Report Type: Spontaneous
  Country: AU (occurrence: None)
  Receive Date: 20130430
  Receipt Date: 20130430
  Transmission Date: 20140414
  Serious: Yes (Death, Hospitalization)
  Sender: FDA-Public Use
  Company Number: AU-LHC-2013023

PATIENT
  Age: 55 Year
  Sex: Female

DRUGS (3)
  1. CARBON DIOXIDE [Suspect]
     Indication: PNEUMOPERITONEUM
     Dates: start: 19930507
  2. HEPARIN [Concomitant]
  3. ANTIBIOTICS [Concomitant]

REACTIONS (31)
  - Traumatic liver injury [None]
  - Procedural complication [None]
  - Urticaria [None]
  - Rash pruritic [None]
  - Abdominal pain upper [None]
  - Nausea [None]
  - Retching [None]
  - Abdominal distension [None]
  - General physical health deterioration [None]
  - Chills [None]
  - Pyrexia [None]
  - Tachycardia [None]
  - Haemoglobin decreased [None]
  - Blood bilirubin increased [None]
  - Excoriation [None]
  - Atelectasis [None]
  - Leukocytosis [None]
  - Infarction [None]
  - Gastrointestinal anastomotic leak [None]
  - Gastrointestinal necrosis [None]
  - Confusional state [None]
  - Chest pain [None]
  - Musculoskeletal pain [None]
  - Hypoxia [None]
  - Hypotension [None]
  - Abdominal sepsis [None]
  - Splenic infarction [None]
  - Hepatic infarction [None]
  - International normalised ratio increased [None]
  - Thrombosis mesenteric vessel [None]
  - Truncus coeliacus thrombosis [None]
